FAERS Safety Report 12575671 (Version 1)
Quarter: 2016Q3

REPORT INFORMATION
  Report Type: Spontaneous
  Country: JP (occurrence: JP)
  Receive Date: 20160720
  Receipt Date: 20160720
  Transmission Date: 20161109
  Serious: Yes (Other)
  Sender: FDA-Public Use
  Company Number: PHJP2015JP006920

PATIENT
  Age: 58 Year
  Sex: Male
  Weight: 83 kg

DRUGS (1)
  1. ARTEMETHER+LUMEFANTRINE [Suspect]
     Active Substance: ARTEMETHER\LUMEFANTRINE
     Indication: PLASMODIUM FALCIPARUM INFECTION
     Dosage: 1 DF (20 MG OF ARTEMETHER AND 120 MG OF LUMEFANTRINE)
     Route: 065

REACTIONS (7)
  - Drug effect delayed [Unknown]
  - Hepatic enzyme increased [Unknown]
  - Nausea [Recovering/Resolving]
  - Vomiting [Recovering/Resolving]
  - Decreased appetite [Unknown]
  - Plasmodium falciparum infection [Unknown]
  - Disease recurrence [Unknown]
